FAERS Safety Report 5422085-6 (Version None)
Quarter: 2007Q3

REPORT INFORMATION
  Report Type: 
  Country: None (occurrence: None)
  Receive Date: 20070821
  Receipt Date: 20070821
  Transmission Date: 20080115
  Serious: Yes (Hospitalization)
  Sender: FDA-Public Use
  Company Number: None

PATIENT
  Age: 59 Year
  Sex: Male

DRUGS (3)
  1. CLOPIDOGREL [Suspect]
     Indication: PROPHYLAXIS
     Dosage: 75MG EVERY DAY PO
     Route: 048
     Dates: start: 20070508, end: 20070731
  2. CLOPIDOGREL [Suspect]
     Indication: STENT OCCLUSION
     Dosage: 75MG EVERY DAY PO
     Route: 048
     Dates: start: 20070508, end: 20070731
  3. ASPIRIN [Suspect]
     Dosage: 81MG EVERY DAY PO
     Route: 048
     Dates: start: 20070501, end: 20070731

REACTIONS (1)
  - GASTRIC HAEMORRHAGE [None]
